FAERS Safety Report 7973578-9 (Version None)
Quarter: 2011Q4

REPORT INFORMATION
  Report Type: 
  Country: None (occurrence: None)
  Receive Date: 20111213
  Receipt Date: 20111130
  Transmission Date: 20120403
  Serious: Yes (Other)
  Sender: FDA-Public Use
  Company Number: US-SHIRE-ALL1-2011-04713

PATIENT
  Sex: Male
  Weight: 52.154 kg

DRUGS (2)
  1. VYVANSE [Suspect]
     Dosage: 60 MG, 1X/DAY:QD
     Route: 048
     Dates: start: 20111101
  2. VYVANSE [Suspect]
     Indication: ATTENTION DEFICIT/HYPERACTIVITY DISORDER
     Dosage: 30 MG, 2X/DAY:BID
     Route: 048
     Dates: start: 20100801, end: 20111101

REACTIONS (6)
  - INSOMNIA [None]
  - DRUG DEPENDENCE [None]
  - INAPPROPRIATE SCHEDULE OF DRUG ADMINISTRATION [None]
  - WITHDRAWAL SYNDROME [None]
  - ANXIETY [None]
  - WEIGHT INCREASED [None]
